FAERS Safety Report 5697881-0 (Version None)
Quarter: 2008Q2

REPORT INFORMATION
  Report Type: 
  Country: None (occurrence: None)
  Receive Date: 20080404
  Receipt Date: 20080404
  Transmission Date: 20081010
  Serious: Yes (Hospitalization, Other)
  Sender: FDA-Public Use
  Company Number: None

PATIENT
  Age: 76 Year
  Sex: Female

DRUGS (8)
  1. HYDRALAZINE HCL [Suspect]
     Dosage: 50 MG PO DAILY
     Route: 048
     Dates: start: 20060911, end: 20060927
  2. AVELOX [Concomitant]
  3. BENICAR [Concomitant]
  4. COREG [Concomitant]
  5. INDAPAMIDE [Concomitant]
  6. ASPIRIN [Concomitant]
  7. MULTI-VITAMIN [Concomitant]
  8. CA SUPPLEMENTS [Concomitant]

REACTIONS (4)
  - DOCUMENTED HYPERSENSITIVITY TO ADMINISTERED DRUG [None]
  - LIVER INJURY [None]
  - NO THERAPEUTIC RESPONSE [None]
  - URINARY TRACT INFECTION [None]
